FAERS Safety Report 7911453-6 (Version None)
Quarter: 2011Q4

REPORT INFORMATION
  Report Type: 
  Country: None (occurrence: None)
  Receive Date: 20111109
  Receipt Date: 20111102
  Transmission Date: 20120403
  Serious: Yes (Hospitalization)
  Sender: FDA-Public Use
  Company Number: AUR-APL-2011-05717

PATIENT
  Age: 86 Year
  Sex: Female
  Weight: 58.96 kg

DRUGS (5)
  1. LASIX [Suspect]
     Indication: HYPERTENSION
     Dosage: ORAL
     Route: 048
     Dates: start: 20111001
  2. LISINOPRIL [Suspect]
     Indication: HYPERTENSION
     Dosage: ORAL
     Route: 048
     Dates: start: 20111001
  3. NORVASC [Suspect]
     Indication: HYPERTENSION
     Dates: start: 20111001
  4. NIFEDIPINE [Suspect]
     Indication: HYPERTENSION
     Dosage: (30 MG,1 D),ORAL
     Route: 048
     Dates: start: 20110906, end: 20111001
  5. CLONIDINE [Suspect]
     Indication: HYPERTENSION
     Dates: start: 20111001

REACTIONS (2)
  - DRUG INEFFECTIVE [None]
  - BLOOD PRESSURE INCREASED [None]
